FAERS Safety Report 4852343-5 (Version None)
Quarter: 2005Q4

REPORT INFORMATION
  Report Type: 
  Country: None (occurrence: None)
  Receive Date: 20051213
  Receipt Date: 20051019
  Transmission Date: 20060501
  Serious: Yes (Hospitalization)
  Sender: FDA-Public Use
  Company Number: TR-ROCHE-421664

PATIENT
  Age: 40 Year
  Sex: Female

DRUGS (2)
  1. CAPECITABINE [Suspect]
     Indication: BREAST CANCER
     Dosage: ADMINISTERED FOR TWO WEEKS OF THE CYCLE.
     Route: 048
     Dates: start: 20050815
  2. CAPECITABINE [Suspect]
     Dosage: REDUCED DOSAGE OF 3300 (NO UNITS PROVIDED).
     Route: 048
     Dates: start: 20050915

REACTIONS (3)
  - CONVULSION [None]
  - DIARRHOEA [None]
  - SUPERIOR SAGITTAL SINUS THROMBOSIS [None]
